FAERS Safety Report 13006736 (Version 2)
Quarter: 2018Q1

REPORT INFORMATION
  Report Type: Spontaneous
  Country: US (occurrence: US)
  Receive Date: 20161207
  Receipt Date: 20180102
  Transmission Date: 20180508
  Serious: Yes (Hospitalization, Other)
  Sender: FDA-Public Use
  Company Number: US-AMGEN-USASP2016169478

PATIENT
  Age: 59 Year
  Sex: Female

DRUGS (13)
  1. NEULASTA [Suspect]
     Active Substance: PEGFILGRASTIM
     Indication: NEUTROPENIA
     Dosage: UNK UNK, AFTER CHEMO
     Route: 065
     Dates: start: 201503
  2. CISPLATIN. [Concomitant]
     Active Substance: CISPLATIN
     Indication: OVARIAN CANCER
     Dosage: UNK
     Dates: start: 201506
  3. CISPLATIN. [Concomitant]
     Active Substance: CISPLATIN
     Dosage: UNK (DAY 1 (D1) AND DAY 13 (D13))
     Dates: start: 20171212
  4. NEULASTA [Suspect]
     Active Substance: PEGFILGRASTIM
     Dosage: UNK UNK, (TWO WEEK REGIMEN) ON DAY 1 (D1) AND DAY 13 (D13) AFTER CHEMO
     Route: 065
     Dates: start: 20171213
  5. NEUPOGEN [Suspect]
     Active Substance: FILGRASTIM
     Indication: NEUTROPENIA
     Dosage: UNK (D9, D10, AND D11)
     Route: 065
     Dates: start: 201503, end: 2015
  6. GEMZAR [Concomitant]
     Active Substance: GEMCITABINE HYDROCHLORIDE
     Dosage: UNK (DAY 1 (D1) AND DAY 13 (D13) OF HER CYCLE)
     Dates: start: 20171212
  7. TAXOL [Concomitant]
     Active Substance: PACLITAXEL
     Indication: OVARIAN CANCER
     Dosage: UNK
     Dates: start: 201503, end: 201504
  8. CARBOPLATIN. [Concomitant]
     Active Substance: CARBOPLATIN
     Dosage: UNK
     Dates: start: 2016
  9. GEMZAR [Concomitant]
     Active Substance: GEMCITABINE HYDROCHLORIDE
     Indication: OVARIAN CANCER
     Dosage: UNK ( D1, D8 AND WOULD RESTART THE CYCLE ON D21)
     Dates: start: 201503
  10. LISINOPRIL. [Concomitant]
     Active Substance: LISINOPRIL
     Dosage: 5 MG, UNK
  11. METOCLOPRAMIDE. [Concomitant]
     Active Substance: METOCLOPRAMIDE
     Dosage: UNK
  12. CARBOPLATIN. [Concomitant]
     Active Substance: CARBOPLATIN
     Indication: OVARIAN CANCER
     Dosage: UNK (D1, D8 AND WOULD RESTART THE CYCLE ON D21)
     Dates: start: 201503, end: 201504
  13. TAXOTERE [Concomitant]
     Active Substance: DOCETAXEL
     Indication: OVARIAN CANCER
     Dosage: UNK
     Dates: start: 201506

REACTIONS (6)
  - Off label use [Unknown]
  - Neutrophil count abnormal [Recovering/Resolving]
  - Drug ineffective [Unknown]
  - White blood cell count abnormal [Not Recovered/Not Resolved]
  - Surgery [Unknown]
  - Recurrent cancer [Not Recovered/Not Resolved]

NARRATIVE: CASE EVENT DATE: 201503
